FAERS Safety Report 20152677 (Version 1)
Quarter: 2021Q4

REPORT INFORMATION
  Report Type: Spontaneous
  Country: US (occurrence: None)
  Receive Date: 20211206
  Receipt Date: 20211206
  Transmission Date: 20220303
  Serious: Yes (Disabling)
  Sender: FDA-Public Use
  Company Number: None

PATIENT
  Age: 43 Year
  Sex: Male
  Weight: 94.3 kg

DRUGS (12)
  1. REPATHA [Suspect]
     Active Substance: EVOLOCUMAB
     Indication: Dyslipidaemia
     Dosage: FREQUENCY : EVERY OTHER WEEK;?
     Route: 058
     Dates: start: 20200201, end: 20200601
  2. REPATHA [Suspect]
     Active Substance: EVOLOCUMAB
     Indication: Coronary artery disease
  3. PRALUENT [Suspect]
     Active Substance: ALIROCUMAB
     Indication: Dyslipidaemia
     Dosage: FREQUENCY : EVERY OTHER WEEK;?
     Route: 058
     Dates: start: 20210704, end: 20210719
  4. PRALUENT [Suspect]
     Active Substance: ALIROCUMAB
     Indication: Coronary artery disease
  5. ASPIRIN [Concomitant]
     Active Substance: ASPIRIN
  6. bisoprolol 5 mg daily [Concomitant]
  7. Brilinta 90 mg BD [Concomitant]
  8. cholecalciferol 2000 units daily [Concomitant]
  9. ferrous suflate 325 mg daily [Concomitant]
  10. fexofenadine 60 mg as needed [Concomitant]
  11. SL nitroglycerin as needed [Concomitant]
  12. ascorbic acid 500 mg daily [Concomitant]

REACTIONS (3)
  - Colitis microscopic [None]
  - Abdominal discomfort [None]
  - Back pain [None]

NARRATIVE: CASE EVENT DATE: 20210704
